FAERS Safety Report 4682165-X (Version None)
Quarter: 2005Q1

REPORT INFORMATION
  Report Type: 
  Country: None (occurrence: None)
  Receive Date: 20050303
  Receipt Date: 20050303
  Transmission Date: 20050727
  Serious: No
  Sender: FDA-Public Use
  Company Number: None

PATIENT
  Sex: Female
  Weight: 77.1115 kg

DRUGS (2)
  1. PREDNISONE [Suspect]
     Indication: ASTHMA
     Dosage: VARIOUS     VARIOUS    ORAL
     Route: 048
     Dates: start: 19900920, end: 20050305
  2. SOLU-MEDROL [Suspect]
     Indication: ASTHMA
     Dosage: IV BAG    4 TIMES A DAY   INTRAVENOU
     Route: 042
     Dates: start: 19900902, end: 19940120

REACTIONS (1)
  - ASEPTIC NECROSIS BONE [None]
